FAERS Safety Report 13128354 (Version 3)
Quarter: 2017Q1

REPORT INFORMATION
  Report Type: Spontaneous
  Country: US (occurrence: US)
  Receive Date: 20170118
  Receipt Date: 20170309
  Transmission Date: 20170428
  Serious: Yes (Death)
  Sender: FDA-Public Use
  Company Number: US-ACTELION-A-NJ2017-148324

PATIENT
  Age: 93 Year
  Sex: Female

DRUGS (1)
  1. OPSUMIT [Suspect]
     Active Substance: MACITENTAN
     Indication: PULMONARY ARTERIAL HYPERTENSION
     Dosage: 10 MG, UNK
     Route: 048
     Dates: start: 20160428

REACTIONS (6)
  - Pneumonia [Fatal]
  - Cardiac failure congestive [Fatal]
  - Lung disorder [Unknown]
  - Chronic obstructive pulmonary disease [Fatal]
  - Respiratory failure [Fatal]
  - Pneumococcal sepsis [Fatal]

NARRATIVE: CASE EVENT DATE: 20161230
